FAERS Safety Report 4962901-5 (Version None)
Quarter: 2006Q1

REPORT INFORMATION
  Report Type: 
  Country: None (occurrence: None)
  Receive Date: 20060331
  Receipt Date: 20060322
  Transmission Date: 20060701
  Serious: Yes (Hospitalization, Other)
  Sender: FDA-Public Use
  Company Number: HQWYE465722MAR06

PATIENT
  Age: 17 Year
  Sex: Male

DRUGS (7)
  1. TAZOCIN (PIPERACILLIN/TAZOBACTAM, INJECTION) [Suspect]
     Indication: C-REACTIVE PROTEIN INCREASED
     Dosage: INTRAVENOUS DRIP
     Route: 041
  2. TAZOCIN (PIPERACILLIN/TAZOBACTAM, INJECTION) [Suspect]
     Indication: PYREXIA
     Dosage: INTRAVENOUS DRIP
     Route: 041
  3. ALL-TRANS RETINOIC ACID (ALL-TRANS RETINOIC ACID,) [Suspect]
     Indication: ACUTE PROMYELOCYTIC LEUKAEMIA
     Dosage: 45 MG/SQ.METER/DAY ORAL
     Route: 048
  4. CEFTAZIDIME [Suspect]
     Dosage: INTRAVENOUS DRIP
     Route: 041
  5. NAFAMOSTAT MESILATE (NAFAMOSTAT MESILATE) [Concomitant]
  6. CYTARABINE [Concomitant]
  7. DAUNOMYCIN (DAUNORUBICIN) [Concomitant]

REACTIONS (1)
  - HISTIOCYTOSIS HAEMATOPHAGIC [None]
